FAERS Safety Report 6089282-0 (Version None)
Quarter: 2009Q1

REPORT INFORMATION
  Report Type: 
  Country: None (occurrence: None)
  Receive Date: 20090224
  Receipt Date: 20090220
  Transmission Date: 20090719
  Serious: Yes (Hospitalization)
  Sender: FDA-Public Use
  Company Number: FR-MERCK-0902FRA00062

PATIENT
  Age: 84 Year
  Sex: Female

DRUGS (7)
  1. FOSAMAX [Suspect]
     Indication: OSTEOPOROSIS
     Route: 048
  2. POLYETHYLENE GLYCOL 4000 [Concomitant]
     Indication: CONSTIPATION
     Route: 048
  3. BRINZOLAMIDE [Suspect]
     Indication: MACULAR DEGENERATION
     Route: 047
  4. CALCIUM CARBONATE AND CHOLECALCIFEROL [Suspect]
     Indication: OSTEOPOROSIS
     Route: 048
  5. LEVETIRACETAM [Suspect]
     Route: 048
     Dates: start: 20080201
  6. ESOMEPRAZOLE MAGNESIUM [Suspect]
     Indication: ABDOMINAL PAIN UPPER
     Route: 048
     Dates: start: 20081201, end: 20081204
  7. RACECADOTRIL [Suspect]
     Indication: DIARRHOEA
     Route: 048
     Dates: start: 20081202, end: 20081204

REACTIONS (2)
  - PRURITUS [None]
  - RASH VESICULAR [None]
